FAERS Safety Report 5733256-3 (Version None)
Quarter: 2008Q2

REPORT INFORMATION
  Report Type: 
  Country: None (occurrence: None)
  Receive Date: 20080509
  Receipt Date: 20080505
  Transmission Date: 20081010
  Serious: Yes (Other)
  Sender: FDA-Public Use
  Company Number: A0713571A

PATIENT
  Sex: Female

DRUGS (1)
  1. ADVAIR HFA [Suspect]

REACTIONS (2)
  - DEVICE INEFFECTIVE [None]
  - PHARMACEUTICAL PRODUCT COMPLAINT [None]
